FAERS Safety Report 9074336 (Version 1)
Quarter: 2013Q1

REPORT INFORMATION
  Report Type: Spontaneous
  Country: US (occurrence: US)
  Receive Date: 20130128
  Receipt Date: 20130128
  Transmission Date: 20140127
  Serious: Yes (Other)
  Sender: FDA-Public Use
  Company Number: US-RB-048995-13

PATIENT
  Age: 28 Year
  Sex: Female

DRUGS (1)
  1. SUBOXONE FILM [Suspect]
     Indication: DRUG DEPENDENCE
     Dosage: SUBOXONE FILM
     Route: 060
     Dates: start: 2011

REACTIONS (4)
  - Abdominal pain [Not Recovered/Not Resolved]
  - Constipation [Unknown]
  - Haematochezia [Unknown]
  - Ovarian germ cell teratoma benign [Not Recovered/Not Resolved]
